FAERS Safety Report 10451470 (Version 2)
Quarter: 2014Q4

REPORT INFORMATION
  Report Type: Report from Study
  Country: US (occurrence: US)
  Receive Date: 20140912
  Receipt Date: 20141003
  Transmission Date: 20150528
  Serious: Yes (Hospitalization)
  Sender: FDA-Public Use
  Company Number: US-ACTELION-A-NJ2014-104857

PATIENT
  Age: 47 Year
  Sex: Female

DRUGS (2)
  1. FLOLAN [Concomitant]
     Active Substance: EPOPROSTENOL SODIUM
     Indication: PRODUCT USED FOR UNKNOWN INDICATION
     Route: 042
  2. TRACLEER [Suspect]
     Active Substance: BOSENTAN\BOSENTAN MONOHYDRATE
     Indication: PULMONARY ARTERIAL HYPERTENSION
     Dosage: 125 MG, BID
     Route: 048
     Dates: start: 200603

REACTIONS (1)
  - Catheter site infection [Recovered/Resolved]

NARRATIVE: CASE EVENT DATE: 20140830
